FAERS Safety Report 5736156-8 (Version None)
Quarter: 2008Q2

REPORT INFORMATION
  Report Type: 
  Country: None (occurrence: None)
  Receive Date: 20080509
  Receipt Date: 20080428
  Transmission Date: 20081010
  Serious: Yes (Other)
  Sender: FDA-Public Use
  Company Number: 027392

PATIENT
  Age: 59 Year
  Sex: Female

DRUGS (2)
  1. PACLITAXEL [Suspect]
     Indication: OVARIAN CANCER
  2. BEVACIZUMAB(BEVACIZUMAB) [Suspect]
     Indication: OVARIAN CANCER
     Dosage: 5 MG/KG, WEEKLY

REACTIONS (8)
  - ARTHRITIS [None]
  - BURNING SENSATION [None]
  - DISEASE PROGRESSION [None]
  - INTESTINAL OBSTRUCTION [None]
  - NAIL DISCOLOURATION [None]
  - OSTEOARTHRITIS [None]
  - OVARIAN CANCER RECURRENT [None]
  - SKIN EXFOLIATION [None]
